FAERS Safety Report 16907812 (Version 1)
Quarter: 2019Q4

REPORT INFORMATION
  Report Type: Spontaneous
  Country: DE (occurrence: DE)
  Receive Date: 20191011
  Receipt Date: 20191011
  Transmission Date: 20200122
  Serious: Yes (Other)
  Sender: FDA-Public Use
  Company Number: DE-TEVA-2019-DE-1119478

PATIENT
  Age: 34 Year
  Sex: Female
  Weight: 78 kg

DRUGS (1)
  1. PENICILLIN V-RATIOPHARM 1 MEGA FILMTABLETTEN [Suspect]
     Active Substance: PENICILLIN V
     Dosage: 3 DOSAGE FORMS DAILY;
     Dates: start: 20190927, end: 20190930

REACTIONS (1)
  - Haematochezia [Recovered/Resolved]

NARRATIVE: CASE EVENT DATE: 20190930
